FAERS Safety Report 14893038 (Version 1)
Quarter: 2018Q2

REPORT INFORMATION
  Report Type: Spontaneous
  Country: US (occurrence: US)
  Receive Date: 20180514
  Receipt Date: 20180514
  Transmission Date: 20180711
  Serious: Yes (Other)
  Sender: FDA-Public Use
  Company Number: US-SA-2017SA213857

PATIENT
  Age: 44 Year
  Sex: Male

DRUGS (1)
  1. ELOXATIN [Suspect]
     Active Substance: OXALIPLATIN
     Indication: COLON CANCER METASTATIC
     Dosage: 59.5MG/?M2=130MG
     Route: 065
     Dates: start: 2014, end: 2014

REACTIONS (4)
  - Pain in extremity [Unknown]
  - Influenza [Unknown]
  - Haematuria [Unknown]
  - Thrombocytopenia [Unknown]
